FAERS Safety Report 5732544-4 (Version None)
Quarter: 2008Q2

REPORT INFORMATION
  Report Type: 
  Country: None (occurrence: None)
  Receive Date: 20080507
  Receipt Date: 20080422
  Transmission Date: 20081010
  Serious: Yes (Hospitalization)
  Sender: FDA-Public Use
  Company Number: E2090-00443-SPO-JP

PATIENT
  Age: 28 Year
  Sex: Female

DRUGS (2)
  1. EXCEGRAN (ZONISAMIDE) [Suspect]
     Indication: EPILEPSY
     Dosage: 200 MG, 1 IN 1 D, ORAL
     Route: 048
     Dates: start: 20080401, end: 20080411
  2. FOLIC ACID [Concomitant]

REACTIONS (11)
  - ERYTHEMA [None]
  - EYE DISCHARGE [None]
  - FACE OEDEMA [None]
  - FEELING ABNORMAL [None]
  - FEELING HOT [None]
  - MALAISE [None]
  - ORAL DISORDER [None]
  - PYREXIA [None]
  - RASH PAPULAR [None]
  - STEVENS-JOHNSON SYNDROME [None]
  - TOXIC SKIN ERUPTION [None]
